FAERS Safety Report 24801413 (Version 3)
Quarter: 2025Q1

REPORT INFORMATION
  Report Type: Spontaneous
  Country: US (occurrence: US)
  Receive Date: 20250102
  Receipt Date: 20250320
  Transmission Date: 20250408
  Serious: Yes (Other)
  Sender: MADRIGAL PHARMACEUTICALS
  Company Number: US-MADRIGAL PHARMACEUTICALS, INC-2024REZ4164

PATIENT

DRUGS (26)
  1. REZDIFFRA [Suspect]
     Active Substance: RESMETIROM
     Indication: Metabolic dysfunction-associated steatohepatitis
     Dosage: 80 MILLIGRAM, QD
     Route: 065
     Dates: start: 20240716, end: 20240805
  2. VITAMIN E [Concomitant]
     Active Substance: .ALPHA.-TOCOPHEROL
     Dates: start: 20220301, end: 20240806
  3. VITAMIN E [Concomitant]
     Active Substance: .ALPHA.-TOCOPHEROL
     Dates: start: 20240912
  4. VITAMIN E [Concomitant]
     Active Substance: .ALPHA.-TOCOPHEROL
     Dates: start: 20240912
  5. ZEPBOUND [Concomitant]
     Active Substance: TIRZEPATIDE
     Indication: Weight control
     Dosage: 2.5 MILLIGRAM, QW
     Dates: start: 20240729, end: 20240805
  6. ZEPBOUND [Concomitant]
     Active Substance: TIRZEPATIDE
     Dosage: 2.5 MILLIGRAM, QW
     Dates: start: 20240912
  7. BUPROPION [Concomitant]
     Active Substance: BUPROPION
     Dates: start: 20190226, end: 20240806
  8. BUPROPION [Concomitant]
     Active Substance: BUPROPION
     Dates: start: 20240912
  9. CETIRIZINE [Concomitant]
     Active Substance: CETIRIZINE HYDROCHLORIDE
     Dates: start: 20210223, end: 20240806
  10. CETIRIZINE [Concomitant]
     Active Substance: CETIRIZINE HYDROCHLORIDE
     Dates: start: 20240912
  11. METFORMIN [Concomitant]
     Active Substance: METFORMIN HYDROCHLORIDE
     Dates: start: 20240627, end: 20240805
  12. METFORMIN [Concomitant]
     Active Substance: METFORMIN HYDROCHLORIDE
     Dates: start: 20240912
  13. MODAFINIL [Concomitant]
     Active Substance: MODAFINIL
     Dates: start: 20240412, end: 20240806
  14. MODAFINIL [Concomitant]
     Active Substance: MODAFINIL
     Dates: start: 20240912
  15. OMEPRAZOLE [Concomitant]
     Active Substance: OMEPRAZOLE
     Dates: start: 20170911, end: 20240806
  16. OMEPRAZOLE [Concomitant]
     Active Substance: OMEPRAZOLE
     Dates: start: 20240912
  17. ROSUVASTATIN [Concomitant]
     Active Substance: ROSUVASTATIN
     Dosage: 10 MILLIGRAM, QD
     Dates: start: 20220915, end: 20240805
  18. ROSUVASTATIN [Concomitant]
     Active Substance: ROSUVASTATIN
     Dosage: 10 MILLIGRAM, QD
     Dates: start: 20240912
  19. VORTIOXETINE [Concomitant]
     Active Substance: VORTIOXETINE
     Dates: start: 20191021, end: 20240806
  20. VORTIOXETINE [Concomitant]
     Active Substance: VORTIOXETINE
     Dates: start: 20240912
  21. NUVARING [Concomitant]
     Active Substance: ETHINYL ESTRADIOL\ETONOGESTREL
     Dates: start: 20171010, end: 20240806
  22. NUVARING [Concomitant]
     Active Substance: ETHINYL ESTRADIOL\ETONOGESTREL
     Dates: start: 20240912
  23. METOPROLOL [Concomitant]
     Active Substance: METOPROLOL
     Dates: start: 20240619, end: 20240805
  24. METOPROLOL [Concomitant]
     Active Substance: METOPROLOL
     Dates: start: 20240912
  25. TIRZEPATIDE [Concomitant]
     Active Substance: TIRZEPATIDE
     Indication: Weight abnormal
     Dosage: 2.5 MILLIGRAM, QW
     Dates: start: 20240729, end: 20240805
  26. TIRZEPATIDE [Concomitant]
     Active Substance: TIRZEPATIDE
     Dosage: 2.5 MILLIGRAM, QW
     Dates: start: 20241008

REACTIONS (1)
  - Suspected drug-induced liver injury [Recovered/Resolved]

NARRATIVE: CASE EVENT DATE: 20240101
